FAERS Safety Report 9925006 (Version 8)
Quarter: 2014Q3

REPORT INFORMATION
  Report Type: Spontaneous
  Country: US (occurrence: US)
  Receive Date: 20140226
  Receipt Date: 20140905
  Transmission Date: 20150326
  Serious: Yes (Hospitalization, Disabling, Other)
  Sender: FDA-Public Use
  Company Number: US-009507513-1204USA00510

PATIENT
  Sex: Female
  Weight: 73.92 kg

DRUGS (5)
  1. FOSAMAX [Suspect]
     Active Substance: ALENDRONATE SODIUM
     Indication: OSTEOPOROSIS
     Dosage: 10 MG, QD
     Route: 048
     Dates: start: 19980801, end: 200102
  2. FOSAMAX [Suspect]
     Active Substance: ALENDRONATE SODIUM
     Indication: KYPHOSIS
     Dosage: 70 MG, QW
     Route: 048
     Dates: start: 200103, end: 200504
  3. FOSAMAX [Suspect]
     Active Substance: ALENDRONATE SODIUM
     Dosage: UNK
     Route: 048
  4. FOSAMAX [Suspect]
     Active Substance: ALENDRONATE SODIUM
     Dosage: UNK, PRN
     Route: 048
  5. FOSAMAX PLUS D [Suspect]
     Active Substance: ALENDRONATE SODIUM\CHOLECALCIFEROL
     Indication: OSTEOPOROSIS
     Dosage: 70 MG/2800 IU , QW
     Route: 048
     Dates: start: 200504, end: 201101

REACTIONS (33)
  - Urinary tract infection [Unknown]
  - Stress fracture [Unknown]
  - Intervertebral disc degeneration [Unknown]
  - Back pain [Not Recovered/Not Resolved]
  - Scoliosis [Unknown]
  - Spondylitis [Unknown]
  - Mitral valve prolapse [Unknown]
  - Migraine [Unknown]
  - Vulvovaginal dryness [Unknown]
  - Calcium deficiency [Unknown]
  - Cellulitis [Unknown]
  - Anaemia [Unknown]
  - Vitamin D deficiency [Unknown]
  - Myalgia [Unknown]
  - Blood phosphorus increased [Recovered/Resolved]
  - Adverse event [Unknown]
  - Spinal compression fracture [Not Recovered/Not Resolved]
  - Femur fracture [Recovered/Resolved]
  - Hypoacusis [Unknown]
  - Facet joint syndrome [Unknown]
  - Essential hypertension [Unknown]
  - Arthralgia [Unknown]
  - Osteoarthritis [Unknown]
  - Gastrooesophageal reflux disease [Unknown]
  - Cholecystectomy [Unknown]
  - Radiculopathy [Unknown]
  - Gait disturbance [Not Recovered/Not Resolved]
  - Bone disorder [Not Recovered/Not Resolved]
  - Intramedullary rod insertion [Recovered/Resolved]
  - Meniscus injury [Unknown]
  - Intervertebral disc protrusion [Unknown]
  - Anxiety [Unknown]
  - Sleep disorder [Unknown]

NARRATIVE: CASE EVENT DATE: 1998
